FAERS Safety Report 7557821-6 (Version None)
Quarter: 2011Q2

REPORT INFORMATION
  Report Type: 
  Country: None (occurrence: None)
  Receive Date: 20110620
  Receipt Date: 20110610
  Transmission Date: 20111010
  Serious: Yes (Other)
  Sender: FDA-Public Use
  Company Number: BR-ASTRAZENECA-2011SE36369

PATIENT
  Age: 564 Month
  Sex: Male
  Weight: 78 kg

DRUGS (2)
  1. DIPYRONE [Concomitant]
     Indication: HEADACHE
     Dosage: UNKNOWN DOSE AS REQUIRED
     Route: 048
  2. ATACAND [Suspect]
     Indication: HYPERTENSION
     Route: 048
     Dates: end: 20110605

REACTIONS (2)
  - DRUG INEFFECTIVE [None]
  - BLOOD PRESSURE INCREASED [None]
